FAERS Safety Report 7372530-4 (Version None)
Quarter: 2011Q1

REPORT INFORMATION
  Report Type: 
  Country: None (occurrence: None)
  Receive Date: 20110324
  Receipt Date: 20110315
  Transmission Date: 20110831
  Serious: Yes (Disabling, Other)
  Sender: FDA-Public Use
  Company Number: US-ASTRAZENECA-2011SE02261

PATIENT
  Age: 78 Year
  Sex: Male
  Weight: 84.1 kg

DRUGS (6)
  1. MEDROL [Concomitant]
  2. EMEND [Concomitant]
  3. AZACITIDINE [Concomitant]
  4. METHYLPREDNISOLONE [Concomitant]
  5. NEXIUM [Suspect]
     Route: 048
  6. ZOFRAN [Concomitant]

REACTIONS (1)
  - MYELODYSPLASTIC SYNDROME [None]
